FAERS Safety Report 8439767-4 (Version None)
Quarter: 2012Q2

REPORT INFORMATION
  Report Type: 
  Country: None (occurrence: None)
  Receive Date: 20120323
  Receipt Date: 20110720
  Transmission Date: 20120825
  Serious: Yes (Hospitalization, Other)
  Sender: FDA-Public Use
  Company Number: 163-21880-11060081

PATIENT
  Age: 66 Year
  Sex: Female

DRUGS (3)
  1. DEXAMETHASONE [Concomitant]
  2. REVLIMID [Suspect]
     Indication: MULTIPLE MYELOMA
     Dosage: 25 MG, DAILY FOR 21 DAYS ON AND 7 DAYS OFF, PO 25 MG, DAILY FOR 21 DAYS ON AND 7 DAYS OFF, PO
     Route: 048
     Dates: start: 20100428, end: 20110508
  3. REVLIMID [Suspect]
     Indication: MULTIPLE MYELOMA
     Dosage: 25 MG, DAILY FOR 21 DAYS ON AND 7 DAYS OFF, PO 25 MG, DAILY FOR 21 DAYS ON AND 7 DAYS OFF, PO
     Route: 048
     Dates: start: 20110501

REACTIONS (1)
  - POSTOPERATIVE ABSCESS [None]
